FAERS Safety Report 5096562-4 (Version None)
Quarter: 2006Q3

REPORT INFORMATION
  Report Type: 
  Country: None (occurrence: None)
  Receive Date: 20060830
  Receipt Date: 20060817
  Transmission Date: 20061208
  Serious: Yes (Hospitalization)
  Sender: FDA-Public Use
  Company Number: 2006100645

PATIENT
  Age: 50 Year
  Sex: Male

DRUGS (2)
  1. UNASYN [Suspect]
     Indication: ABSCESS
     Dosage: 3 GRAM (750 MG, 1 IN 6 HR) INTRAVENOUS
     Route: 042
     Dates: start: 20060814, end: 20060815
  2. CATAFLAM [Concomitant]

REACTIONS (2)
  - BLISTER [None]
  - RASH GENERALISED [None]
